FAERS Safety Report 9301386 (Version 2)
Quarter: 2013Q2

REPORT INFORMATION
  Report Type: Spontaneous
  Country: NL (occurrence: NL)
  Receive Date: 20130521
  Receipt Date: 20130607
  Transmission Date: 20140414
  Serious: Yes (Life-Threatening, Hospitalization)
  Sender: FDA-Public Use
  Company Number: NL-ASTRAZENECA-2013SE35201

PATIENT
  Age: 66 Year
  Sex: Female
  Weight: 85 kg

DRUGS (5)
  1. LISINOPRIL [Suspect]
     Indication: HYPERTENSION
     Dosage: PAST DRUG THERAPY
     Route: 048
  2. LISINOPRIL [Suspect]
     Indication: HYPERTENSION
     Route: 048
     Dates: start: 201203
  3. LISINOPRIL [Suspect]
     Indication: HYPERTENSION
     Route: 048
     Dates: start: 20120320, end: 20130429
  4. METFORMINE [Concomitant]
     Route: 048
  5. METFORMINE [Concomitant]
     Route: 048
     Dates: start: 2010

REACTIONS (5)
  - Dyspnoea [Recovering/Resolving]
  - Dysphonia [Recovering/Resolving]
  - Hypersensitivity [Recovering/Resolving]
  - Angioedema [Recovered/Resolved]
  - Tachycardia [Recovered/Resolved]
